FAERS Safety Report 7636090-2 (Version None)
Quarter: 2011Q3

REPORT INFORMATION
  Report Type: 
  Country: None (occurrence: None)
  Receive Date: 20110722
  Receipt Date: 20110722
  Transmission Date: 20111222
  Serious: Yes (Hospitalization, Other)
  Sender: FDA-Public Use
  Company Number: None

PATIENT
  Age: 46 Year
  Sex: Female
  Weight: 109.3169 kg

DRUGS (2)
  1. TRILEPTAL [Suspect]
     Indication: AFFECTIVE DISORDER
     Dosage: 2007 - 150MG 1X DAY; 1010 - 300MG 1 X DAY
     Dates: start: 20040101, end: 20070101
  2. TRILEPTAL [Suspect]
     Indication: AFFECTIVE DISORDER
     Dosage: 2007 - 150MG 1X DAY; 1010 - 300MG 1 X DAY
     Dates: start: 20100101

REACTIONS (7)
  - DISORIENTATION [None]
  - LOSS OF CONSCIOUSNESS [None]
  - FALL [None]
  - DIZZINESS [None]
  - DYSARTHRIA [None]
  - HEAD INJURY [None]
  - PARAPLEGIA [None]
